FAERS Safety Report 22598454 (Version 2)
Quarter: 2023Q2

REPORT INFORMATION
  Report Type: Spontaneous
  Country: NL (occurrence: NL)
  Receive Date: 20230614
  Receipt Date: 20230626
  Transmission Date: 20230722
  Serious: Yes (Death, Life-Threatening, Hospitalization, Disabling, Other)
  Sender: FDA-Public Use
  Company Number: None

PATIENT
  Sex: Female
  Weight: 77 kg

DRUGS (7)
  1. EVEROLIMUS [Suspect]
     Active Substance: EVEROLIMUS
     Indication: Neuroendocrine carcinoma metastatic
     Dosage: 5 MG, QD (1 X PER DAG 1 STUK)
     Route: 065
     Dates: start: 20230314, end: 20230521
  2. LANREOTIDE [Concomitant]
     Active Substance: LANREOTIDE
     Indication: Product used for unknown indication
     Dosage: UNK, (INJVLST, INJECTIEVLOEISTOF, 300 MG/ML (MILLIGRAM PER MILLILITER))
     Route: 065
  3. OCTREOTIDE [Concomitant]
     Active Substance: OCTREOTIDE
     Indication: Product used for unknown indication
     Dosage: UNK (INJVLST, INJECTIEVLOEISTOF, 0,05 MG/ML (MILLIGRAM PER MILLILITER))
     Route: 065
  4. METOCLOPRAMIDE [Concomitant]
     Active Substance: METOCLOPRAMIDE
     Indication: Product used for unknown indication
     Dosage: 10 MG (ZO NODIG 3 X PER DAG 10 MILLIGRAM)
     Route: 065
  5. CHOLECALCIFEROL [Concomitant]
     Active Substance: CHOLECALCIFEROL
     Indication: Product used for unknown indication
     Dosage: 1 DOSAGE FORM, QD (1 X PER DAG 1 STUK)
     Route: 065
  6. LIDOCAINE [Concomitant]
     Active Substance: LIDOCAINE
     Indication: Product used for unknown indication
     Dosage: 10 ML (ZO NODIG 3 X PER DAG 10 MILLILITER)
     Route: 065
  7. ACETAMINOPHEN [Concomitant]
     Active Substance: ACETAMINOPHEN
     Indication: Product used for unknown indication
     Dosage: 1000 MG, Q8H (ORAAL; 3 X PER DAG 1000 MILLIGRAM)
     Route: 065

REACTIONS (3)
  - Hepatic encephalopathy [Fatal]
  - Hepatic steatosis [Not Recovered/Not Resolved]
  - Hyperammonaemia [Not Recovered/Not Resolved]
